FAERS Safety Report 10265145 (Version 1)
Quarter: 2014Q2

REPORT INFORMATION
  Report Type: Spontaneous
  Country: CO (occurrence: CO)
  Receive Date: 20140627
  Receipt Date: 20140627
  Transmission Date: 20141212
  Serious: Yes (Other)
  Sender: FDA-Public Use
  Company Number: CO-PFIZER INC-2014174559

PATIENT
  Sex: Female

DRUGS (1)
  1. EPAMIN [Suspect]
     Indication: CONVULSION
     Dosage: UNK
     Dates: start: 1996

REACTIONS (1)
  - Renal disorder [Unknown]
